FAERS Safety Report 4822988-7 (Version None)
Quarter: 2005Q4

REPORT INFORMATION
  Report Type: 
  Country: None (occurrence: None)
  Receive Date: 20051107
  Receipt Date: 20051107
  Transmission Date: 20060501
  Serious: Yes (Hospitalization)
  Sender: FDA-Public Use
  Company Number: None

PATIENT
  Age: 64 Year
  Sex: Male
  Weight: 103.6 kg

DRUGS (2)
  1. NAVELBINE [Suspect]
     Indication: NON-SMALL CELL LUNG CANCER
     Dosage: 1250 MG/M2 DAYS 1 + 15 IV
     Route: 042
     Dates: start: 20051027, end: 20051027
  2. DOCETAXEL [Suspect]
     Dosage: 40 MG/M2  DAYS 1 + 15 IV
     Route: 042
     Dates: start: 20051027, end: 20051027

REACTIONS (2)
  - CHILLS [None]
  - PYREXIA [None]
